FAERS Safety Report 7155796-5 (Version None)
Quarter: 2010Q4

REPORT INFORMATION
  Report Type: 
  Country: None (occurrence: None)
  Receive Date: 20101123
  Receipt Date: 20100312
  Transmission Date: 20110411
  Serious: No
  Sender: FDA-Public Use
  Company Number: 008699

PATIENT
  Sex: Female
  Weight: 68 kg

DRUGS (7)
  1. CIMZIA [Suspect]
     Indication: CROHN'S DISEASE
     Dosage: (SUBCUTANEOUS)
     Route: 058
     Dates: start: 20100210
  2. MERCAPTOPURINE [Concomitant]
  3. CLARITIN /00917501/ [Concomitant]
  4. ORTHO CYCLEN-28 [Concomitant]
  5. MULTIVITAMIN /01229101/ [Concomitant]
  6. CALCIUM [Concomitant]
  7. ACIDOPHILUS [Concomitant]

REACTIONS (4)
  - DRUG ADMINISTRATION ERROR [None]
  - INCORRECT ROUTE OF DRUG ADMINISTRATION [None]
  - INJECTION SITE INFLAMMATION [None]
  - INJECTION SITE PAIN [None]
